FAERS Safety Report 8319983-2 (Version None)
Quarter: 2012Q2

REPORT INFORMATION
  Report Type: 
  Country: None (occurrence: None)
  Receive Date: 20120427
  Receipt Date: 20120418
  Transmission Date: 20120825
  Serious: Yes (Hospitalization)
  Sender: FDA-Public Use
  Company Number: NL-MEDIMMUNE-MEDI-0014755

PATIENT
  Sex: Male
  Weight: 5.93 kg

DRUGS (2)
  1. SYNAGIS [Suspect]
     Indication: PREMATURE BABY
     Route: 030
     Dates: start: 20110908, end: 20111229
  2. SYNAGIS [Suspect]
     Indication: BRONCHOPULMONARY DYSPLASIA
     Route: 030
     Dates: start: 20120126, end: 20120126

REACTIONS (4)
  - FLUID INTAKE REDUCED [None]
  - COUGH [None]
  - DYSPNOEA [None]
  - RESPIRATORY SYNCYTIAL VIRUS TEST POSITIVE [None]
